FAERS Safety Report 8035501-0 (Version None)
Quarter: 2012Q1

REPORT INFORMATION
  Report Type: 
  Country: None (occurrence: None)
  Receive Date: 20120110
  Receipt Date: 20120110
  Transmission Date: 20120608
  Serious: No
  Sender: FDA-Public Use
  Company Number: None

PATIENT
  Age: 46 Year
  Sex: Male
  Weight: 107.3 kg

DRUGS (1)
  1. OLANZAPINE [Suspect]
     Indication: BIPOLAR I DISORDER
     Dosage: 10 MG EVERY DAY PO
     Route: 048
     Dates: start: 20110914, end: 20111121

REACTIONS (5)
  - SPLENOMEGALY [None]
  - HEPATIC ENZYME ABNORMAL [None]
  - HEPATITIS [None]
  - BLOOD TRIGLYCERIDES INCREASED [None]
  - BLOOD CHOLESTEROL INCREASED [None]
